FAERS Safety Report 9829993 (Version 2)
Quarter: 2014Q2

REPORT INFORMATION
  Report Type: Spontaneous
  Country: IT (occurrence: IT)
  Receive Date: 20140120
  Receipt Date: 20140407
  Transmission Date: 20141212
  Serious: Yes (Hospitalization)
  Sender: FDA-Public Use
  Company Number: PHHY2014IT004236

PATIENT
  Age: 75 Year
  Sex: Male

DRUGS (10)
  1. METFORMIN [Suspect]
     Dosage: 1000 MG, QD
     Route: 048
     Dates: start: 20080901, end: 20131030
  2. LANTUS [Concomitant]
     Dosage: UNK
     Route: 058
  3. CARDIRENE [Concomitant]
     Dosage: UNK
     Route: 048
  4. REXTAT [Concomitant]
     Dosage: UNK
     Route: 048
  5. UNIPRILDIUR [Concomitant]
     Dosage: UNK
     Route: 048
  6. GLUCOBAY [Concomitant]
     Dosage: UNK
     Route: 048
  7. VALPRESSION [Concomitant]
     Dosage: UNK
     Route: 048
  8. TENORMIN [Concomitant]
     Dosage: UNK
     Route: 048
  9. NITRO-DUR [Concomitant]
     Dosage: UNK
     Route: 062
  10. LANSOPRAZOLE [Concomitant]
     Dosage: UNK
     Route: 048

REACTIONS (3)
  - Renal failure acute [Recovered/Resolved]
  - Anuria [Recovered/Resolved]
  - Metabolic acidosis [Recovered/Resolved]
